FAERS Safety Report 18314131 (Version 4)
Quarter: 2021Q1

REPORT INFORMATION
  Report Type: Report from Study
  Country: US (occurrence: US)
  Receive Date: 20200926
  Receipt Date: 20210331
  Transmission Date: 20210419
  Serious: Yes (Other)
  Sender: FDA-Public Use
  Company Number: NVSC2020US259974

PATIENT
  Sex: Female
  Weight: 68.03 kg

DRUGS (3)
  1. OPSUMIT [Concomitant]
     Active Substance: MACITENTAN
     Indication: PRODUCT USED FOR UNKNOWN INDICATION
     Dosage: UNK
     Route: 065
  2. TREPROSTINIL. [Suspect]
     Active Substance: TREPROSTINIL
     Dosage: 151 NG/KG/MIN (STRENGTH 5MG/ML)
     Route: 042
     Dates: start: 20190410
  3. TREPROSTINIL. [Suspect]
     Active Substance: TREPROSTINIL
     Indication: PULMONARY ARTERIAL HYPERTENSION
     Dosage: UNK UNK, CONT (147 NG/KG) (STRENGTH 10MG/ML)
     Route: 042
     Dates: start: 20190410

REACTIONS (4)
  - Autoimmune disorder [Unknown]
  - Migraine [Unknown]
  - Hypersensitivity [Unknown]
  - Constipation [Unknown]
